FAERS Safety Report 11723880 (Version 1)
Quarter: 2015Q4

REPORT INFORMATION
  Report Type: Spontaneous
  Country: US (occurrence: US)
  Receive Date: 20151111
  Receipt Date: 20151111
  Transmission Date: 20160304
  Serious: Yes (Other)
  Sender: FDA-Public Use
  Company Number: US-PFIZER INC-2015356486

PATIENT
  Sex: Female

DRUGS (1)
  1. PREPARATION H SUPPOSITORY [Suspect]
     Active Substance: COCOA BUTTER\PHENYLEPHRINE HYDROCHLORIDE
     Indication: HAEMORRHOIDS
     Dosage: UNK
     Dates: end: 20151019

REACTIONS (4)
  - Product quality issue [Unknown]
  - Haemorrhoids [Unknown]
  - Sinusitis [Unknown]
  - Poor quality drug administered [Unknown]
